FAERS Safety Report 8234797-X (Version None)
Quarter: 2012Q1

REPORT INFORMATION
  Report Type: 
  Country: None (occurrence: None)
  Receive Date: 20120326
  Receipt Date: 20120315
  Transmission Date: 20120608
  Serious: Yes (Hospitalization)
  Sender: FDA-Public Use
  Company Number: US-ELI_LILLY_AND_COMPANY-US201104007127

PATIENT
  Sex: Female

DRUGS (5)
  1. FORTEO [Suspect]
     Indication: OSTEOPOROSIS
     Dosage: 20 UG, QD
     Route: 065
     Dates: start: 20110411
  2. FORTEO [Suspect]
     Dosage: 20 UG, QD
     Route: 065
  3. NEURONTIN [Concomitant]
  4. COUMADIN [Concomitant]
  5. FORTEO [Suspect]
     Dosage: 20 UG, QD
     Route: 065
     Dates: end: 20120101

REACTIONS (13)
  - PALPITATIONS [None]
  - EXTRASYSTOLES [None]
  - DECREASED APPETITE [None]
  - BLOOD PRESSURE ABNORMAL [None]
  - MUSCLE SPASMS [None]
  - NAUSEA [None]
  - CARDIAC DISORDER [None]
  - HEART RATE INCREASED [None]
  - DRUG DOSE OMISSION [None]
  - INJECTION SITE HAEMATOMA [None]
  - BRONCHITIS [None]
  - LIVER DISORDER [None]
  - PANCREATIC DISORDER [None]
